FAERS Safety Report 12365051 (Version 1)
Quarter: 2016Q2

REPORT INFORMATION
  Report Type: Spontaneous
  Country: US (occurrence: None)
  Receive Date: 20160512
  Receipt Date: 20160512
  Transmission Date: 20160815
  Serious: Yes (Other)
  Sender: FDA-Public Use
  Company Number: None

PATIENT
  Age: 46 Year
  Sex: Female

DRUGS (1)
  1. IBRANCE [Suspect]
     Active Substance: PALBOCICLIB
     Indication: BREAST CANCER
     Dosage: 1 CAPSULE Q DAY X 21 DAYS ORAL
     Route: 048
     Dates: start: 20151030

REACTIONS (4)
  - Fatigue [None]
  - Alopecia [None]
  - Hypoaesthesia [None]
  - Madarosis [None]
